FAERS Safety Report 10086745 (Version 4)
Quarter: 2014Q2

REPORT INFORMATION
  Report Type: Report from Study
  Country: US (occurrence: US)
  Receive Date: 20140418
  Receipt Date: 20140428
  Transmission Date: 20141212
  Serious: Yes (Life-Threatening, Other)
  Sender: FDA-Public Use
  Company Number: US-ASTRAZENECA-2014SE24848

PATIENT
  Age: 26878 Day
  Sex: Female

DRUGS (17)
  1. ACETAMINOPHEN [Concomitant]
     Indication: PAIN
     Dosage: AS REQUIRED
     Route: 048
     Dates: start: 20130214, end: 20130217
  2. EPIFIBATIDE [Concomitant]
     Indication: MYOCARDIAL INFARCTION
     Route: 040
     Dates: start: 20130214, end: 20130215
  3. ASA [Concomitant]
     Route: 048
     Dates: end: 20130214
  4. ASA [Concomitant]
     Route: 048
     Dates: start: 20130215, end: 20130224
  5. ASA [Concomitant]
     Route: 048
     Dates: start: 20130225
  6. AZD6140 [Suspect]
     Indication: CORONARY ARTERY DISEASE
     Route: 048
     Dates: start: 20120410, end: 20130214
  7. AZD6140 [Suspect]
     Indication: CORONARY ARTERY DISEASE
     Route: 048
     Dates: start: 20130225
  8. ISOSORBIDE [Concomitant]
     Indication: HYPERTENSION
     Route: 048
  9. METOPROLOL [Concomitant]
     Indication: HYPERTENSION
     Route: 048
     Dates: end: 20130222
  10. METOPROLOL [Concomitant]
     Indication: CORONARY ARTERY DISEASE
     Route: 048
     Dates: end: 20130222
  11. RAMIPRIL [Concomitant]
     Indication: HYPERTENSION
     Route: 048
  12. RAMIPRIL [Concomitant]
     Indication: CORONARY ARTERY DISEASE
     Route: 048
  13. RANEXA [Concomitant]
     Indication: ANGINA PECTORIS
     Route: 048
  14. RANEXA [Concomitant]
     Indication: CORONARY ARTERY DISEASE
     Route: 048
  15. XANAX [Concomitant]
     Indication: SLEEP DISORDER
     Route: 048
     Dates: end: 20131123
  16. XANAX [Concomitant]
     Indication: ANXIETY
     Route: 048
     Dates: end: 20131123
  17. XANAX [Concomitant]
     Indication: STRESS
     Route: 048
     Dates: end: 20131123

REACTIONS (2)
  - Gastrointestinal arteriovenous malformation [Not Recovered/Not Resolved]
  - Ventricular tachycardia [Recovered/Resolved]
